FAERS Safety Report 23505947 (Version 1)
Quarter: 2024Q1

REPORT INFORMATION
  Report Type: Spontaneous
  Country: US (occurrence: None)
  Receive Date: 20240208
  Receipt Date: 20240208
  Transmission Date: 20240409
  Serious: Yes (Hospitalization)
  Sender: FDA-Public Use
  Company Number: None

PATIENT
  Sex: Female

DRUGS (5)
  1. NUCALA [Suspect]
     Active Substance: MEPOLIZUMAB
     Indication: Asthma
     Dosage: OTHER FREQUENCY : EVERY 28 DAYS;?
     Route: 058
     Dates: start: 202003
  2. TYVASO [Concomitant]
  3. RUCONEST [Concomitant]
     Active Substance: CONESTAT ALFA
  4. ADEMPAS [Concomitant]
     Active Substance: RIOCIGUAT
  5. TAKHZRO [Concomitant]

REACTIONS (2)
  - Dyspnoea [None]
  - Nonspecific reaction [None]
